FAERS Safety Report 11724215 (Version 1)
Quarter: 2015Q4

REPORT INFORMATION
  Report Type: Spontaneous
  Country: US (occurrence: US)
  Receive Date: 20151111
  Receipt Date: 20151111
  Transmission Date: 20160304
  Serious: No
  Sender: FDA-Public Use
  Company Number: US-PFIZER INC-2015382997

PATIENT
  Age: 66 Year
  Sex: Female

DRUGS (2)
  1. ESTRING [Suspect]
     Active Substance: ESTRADIOL
     Indication: URINARY TRACT INFECTION
     Dosage: UNK
  2. ESTRING [Suspect]
     Active Substance: ESTRADIOL
     Indication: PELVIC DISCOMFORT
     Dosage: 2 MG, UNK
     Dates: start: 20150920

REACTIONS (4)
  - Breast pain [Recovering/Resolving]
  - Product use issue [Unknown]
  - Abdominal pain [Recovering/Resolving]
  - Nasopharyngitis [Unknown]
